FAERS Safety Report 4641041-9 (Version None)
Quarter: 2005Q2

REPORT INFORMATION
  Report Type: 
  Country: None (occurrence: None)
  Receive Date: 20050419
  Receipt Date: 20050419
  Transmission Date: 20051028
  Serious: No
  Sender: FDA-Public Use
  Company Number: None

PATIENT
  Sex: Male

DRUGS (1)
  1. COUMADIN [Suspect]
     Dosage: 2 TABLETS DAILY PO
     Route: 048

REACTIONS (1)
  - INTERNATIONAL NORMALISED RATIO FLUCTUATION [None]
